FAERS Safety Report 6925198-2 (Version None)
Quarter: 2010Q3

REPORT INFORMATION
  Report Type: 
  Country: None (occurrence: None)
  Receive Date: 20100810
  Receipt Date: 20100727
  Transmission Date: 20110219
  Serious: Yes (Hospitalization)
  Sender: FDA-Public Use
  Company Number: 1000014567

PATIENT
  Age: 31 Year
  Sex: Female

DRUGS (3)
  1. FOSFOMYCIN (FOSFOMYCIN TROMETAMOL) (GRANULATE) [Suspect]
     Indication: URINARY TRACT INFECTION
     Dosage: 3 GM (3 GM, 1 IN 1 D), ORAL
     Route: 048
     Dates: start: 20100326, end: 20100326
  2. CLAVULIN (TABLETS) [Suspect]
     Indication: URINARY TRACT INFECTION
     Dosage: 2 DOSAGE FORMS (2 DOSAGE FORMS, 1 IN 1 D), ORAL
     Route: 048
     Dates: start: 20100325, end: 20100325
  3. CETIRIZINE HCL [Concomitant]

REACTIONS (1)
  - URTICARIA [None]
